FAERS Safety Report 14774361 (Version 1)
Quarter: 2018Q2

REPORT INFORMATION
  Report Type: Spontaneous
  Country: DE (occurrence: DE)
  Receive Date: 20180418
  Receipt Date: 20180418
  Transmission Date: 20180711
  Serious: Yes (Hospitalization)
  Sender: FDA-Public Use
  Company Number: DE-B.I. PHARMACEUTICALS,INC./RIDGEFIELD-2018-12-001334

PATIENT
  Age: 54 Year
  Sex: Male
  Weight: 106 kg

DRUGS (2)
  1. MICARDIS HCT [Suspect]
     Active Substance: HYDROCHLOROTHIAZIDE\TELMISARTAN
     Indication: PRODUCT USED FOR UNKNOWN INDICATION
     Dosage: 80|12.5 MG, 1-0-0, TABLETTEN
     Route: 048
  2. SIMVASTATIN. [Concomitant]
     Active Substance: SIMVASTATIN
     Indication: PRODUCT USED FOR UNKNOWN INDICATION
     Dosage: 20 MG, 1-0-0, TABLETTEN
     Route: 048

REACTIONS (5)
  - Dizziness [Unknown]
  - Dyspnoea [Unknown]
  - Nausea [Unknown]
  - Chest pain [Unknown]
  - Cold sweat [Unknown]
